FAERS Safety Report 5497586-5 (Version None)
Quarter: 2007Q4

REPORT INFORMATION
  Report Type: 
  Country: None (occurrence: None)
  Receive Date: 20071025
  Receipt Date: 20061212
  Transmission Date: 20080405
  Serious: No
  Sender: FDA-Public Use
  Company Number: A0631333A

PATIENT
  Age: 50 Year
  Sex: Male

DRUGS (2)
  1. ADVAIR DISKUS 100/50 [Suspect]
     Indication: CHRONIC OBSTRUCTIVE PULMONARY DISEASE
     Dosage: 1PUFF TWICE PER DAY
     Route: 055
     Dates: start: 20061101
  2. COMBIVENT [Suspect]
     Indication: EMPHYSEMA
     Route: 065

REACTIONS (1)
  - MUSCLE SPASMS [None]
